FAERS Safety Report 6483972-3 (Version None)
Quarter: 2009Q4

REPORT INFORMATION
  Report Type: 
  Country: None (occurrence: None)
  Receive Date: 20091208
  Receipt Date: 20091208
  Transmission Date: 20100525
  Serious: Yes (Hospitalization)
  Sender: FDA-Public Use
  Company Number: None

PATIENT
  Age: 21 Year
  Sex: Female
  Weight: 35.8342 kg

DRUGS (5)
  1. LEPTIN [Suspect]
     Indication: CONGENITAL GENERALISED LIPODYSTROPHY
     Dosage: 30 UNITS SQ BID
     Route: 058
     Dates: start: 20090222
  2. LEPTIN [Suspect]
     Indication: DIABETES MELLITUS
     Dosage: 30 UNITS SQ BID
     Route: 058
     Dates: start: 20090222
  3. LEPTIN [Suspect]
     Indication: HYPERCHOLESTEROLAEMIA
     Dosage: 30 UNITS SQ BID
     Route: 058
     Dates: start: 20090222
  4. LANTUS [Concomitant]
  5. LISPRO INSULIN [Concomitant]

REACTIONS (3)
  - FALL [None]
  - HYPERTRIGLYCERIDAEMIA [None]
  - JOINT DISLOCATION [None]
